FAERS Safety Report 15900639 (Version 1)
Quarter: 2019Q1

REPORT INFORMATION
  Report Type: Report from Study
  Country: DE (occurrence: DE)
  Receive Date: 20190201
  Receipt Date: 20190201
  Transmission Date: 20190417
  Serious: Yes (Other)
  Sender: FDA-Public Use
  Company Number: PHHY2019DE018943

PATIENT
  Sex: Female

DRUGS (7)
  1. DEKRISTOL [Concomitant]
     Active Substance: CHOLECALCIFEROL
     Indication: VITAMIN D DEFICIENCY
     Dosage: 200000 IU, UNK
     Route: 048
     Dates: start: 20130502
  2. GILENYA [Suspect]
     Active Substance: FINGOLIMOD HYDROCHLORIDE
     Indication: MULTIPLE SCLEROSIS
     Dosage: 0.5 MG, QD
     Route: 048
     Dates: start: 20131119, end: 20131126
  3. PREDNISOLON [Concomitant]
     Active Substance: PREDNISOLONE
     Indication: ERYTHEMA
     Dosage: 20 MG, UNK
     Route: 048
     Dates: start: 20150105, end: 20150108
  4. IBUPROFEN. [Concomitant]
     Active Substance: IBUPROFEN
     Indication: ERYTHEMA
     Dosage: 1200 MG, BID
     Route: 048
     Dates: start: 20150105, end: 20150201
  5. PANTOZOL [Concomitant]
     Active Substance: PANTOPRAZOLE SODIUM
     Indication: PROPHYLAXIS
     Dosage: 80 MG, BID
     Route: 048
     Dates: start: 20150105, end: 20150112
  6. GILENYA [Suspect]
     Active Substance: FINGOLIMOD HYDROCHLORIDE
     Dosage: 0.5 MG, QD
     Route: 048
     Dates: start: 20131119
  7. DERMATOP [Concomitant]
     Active Substance: PREDNICARBATE
     Indication: ERYTHEMA
     Dosage: UNK UNK, BID
     Route: 061
     Dates: start: 20150105, end: 20150330

REACTIONS (2)
  - Panniculitis [Recovered/Resolved]
  - Panniculitis [Recovered/Resolved]

NARRATIVE: CASE EVENT DATE: 20141229
